FAERS Safety Report 23054523 (Version 3)
Quarter: 2023Q4

REPORT INFORMATION
  Report Type: Spontaneous
  Country: US (occurrence: US)
  Receive Date: 20231011
  Receipt Date: 20231019
  Transmission Date: 20240110
  Serious: Yes (Other)
  Sender: FDA-Public Use
  Company Number: US-PFIZER INC-202300317191

PATIENT
  Age: 59 Year
  Sex: Female
  Weight: 126.98 kg

DRUGS (1)
  1. ESTRING [Suspect]
     Active Substance: ESTRADIOL
     Indication: Genitourinary symptom
     Dosage: 2 MG, EVERY 3 MONTHS
     Route: 067
     Dates: start: 202210

REACTIONS (8)
  - Suicidal ideation [Recovering/Resolving]
  - Drug ineffective for unapproved indication [Unknown]
  - Syncope [Unknown]
  - Fatigue [Unknown]
  - Toxicity to various agents [Unknown]
  - Fall [Unknown]
  - Head injury [Unknown]
  - Off label use [Recovering/Resolving]
